FAERS Safety Report 16140183 (Version 1)
Quarter: 2019Q2

REPORT INFORMATION
  Report Type: Spontaneous
  Country: EC (occurrence: EC)
  Receive Date: 20190329
  Receipt Date: 20190329
  Transmission Date: 20190711
  Serious: Yes (Disabling)
  Sender: FDA-Public Use
  Company Number: None

PATIENT
  Age: 34 Year
  Sex: Female
  Weight: 63 kg

DRUGS (1)
  1. NEURYL, CLONAZEPAM [Suspect]
     Active Substance: CLONAZEPAM
     Indication: SLEEP DISORDER
     Dosage: ?          QUANTITY:5 DROP(S);?
     Route: 048
     Dates: start: 20120213, end: 20180513

REACTIONS (3)
  - Bladder pain [None]
  - Pollakiuria [None]
  - Withdrawal syndrome [None]

NARRATIVE: CASE EVENT DATE: 20181012
